FAERS Safety Report 4791386-7 (Version None)
Quarter: 2005Q4

REPORT INFORMATION
  Report Type: 
  Country: None (occurrence: None)
  Receive Date: 20051007
  Receipt Date: 20050922
  Transmission Date: 20060501
  Serious: Yes (Other)
  Sender: FDA-Public Use
  Company Number: GB-MERCK-0510GBR00010

PATIENT
  Sex: Male

DRUGS (2)
  1. VIOXX [Suspect]
     Indication: OSTEOARTHRITIS
     Route: 048
     Dates: start: 20020918, end: 20030923
  2. VIOXX [Suspect]
     Indication: PAIN
     Route: 048
     Dates: start: 20020918, end: 20030923

REACTIONS (1)
  - MYOCARDIAL INFARCTION [None]
